FAERS Safety Report 8154081-2 (Version None)
Quarter: 2012Q1

REPORT INFORMATION
  Report Type: 
  Country: None (occurrence: None)
  Receive Date: 20120221
  Receipt Date: 20120216
  Transmission Date: 20120608
  Serious: Yes (Hospitalization)
  Sender: FDA-Public Use
  Company Number: FR-MERCK-1106FRA00057

PATIENT
  Age: 62 Year
  Sex: Male
  Weight: 111 kg

DRUGS (14)
  1. GLICLAZIDE [Concomitant]
     Route: 048
     Dates: start: 20111025
  2. HYDROCHLOROTHIAZIDE AND IRBESARTAN [Suspect]
     Indication: HYPERTENSION
     Route: 065
  3. METFORMIN HYDROCHLORIDE AND PIOGLITAZONE HYDROCHLORIDE [Concomitant]
     Route: 048
     Dates: start: 20110222, end: 20110910
  4. GLICLAZIDE [Concomitant]
     Route: 048
     Dates: start: 20100810, end: 20110531
  5. LIRAGLUTIDE [Concomitant]
     Route: 051
     Dates: start: 20111025
  6. LIRAGLUTIDE [Concomitant]
     Route: 051
     Dates: start: 20110531, end: 20111025
  7. METFORMIN [Concomitant]
     Indication: TYPE 2 DIABETES MELLITUS
     Route: 048
     Dates: start: 20110910, end: 20111025
  8. JANUMET [Suspect]
     Indication: TYPE 2 DIABETES MELLITUS
     Route: 048
     Dates: start: 20100628, end: 20110220
  9. METFORMIN [Concomitant]
     Route: 048
     Dates: start: 20111025
  10. GLICLAZIDE [Concomitant]
     Route: 048
     Dates: start: 20110910, end: 20111025
  11. ALLOPURINOL [Suspect]
     Indication: HYPERURICAEMIA
     Route: 065
  12. GLICLAZIDE [Concomitant]
     Indication: TYPE 2 DIABETES MELLITUS
     Route: 048
     Dates: start: 20100315, end: 20100810
  13. ROSUVASTATIN CALCIUM [Suspect]
     Indication: HYPERLIPIDAEMIA
     Route: 065
  14. INSULIN GLARGINE [Concomitant]
     Indication: TYPE 2 DIABETES MELLITUS
     Route: 051
     Dates: start: 20100315, end: 20110531

REACTIONS (2)
  - PARONYCHIA [None]
  - VIRAL PERICARDITIS [None]
